FAERS Safety Report 5674667-4 (Version None)
Quarter: 2008Q1

REPORT INFORMATION
  Report Type: 
  Country: None (occurrence: None)
  Receive Date: 20080320
  Receipt Date: 20080314
  Transmission Date: 20080703
  Serious: Yes (Other)
  Sender: FDA-Public Use
  Company Number: A0716524A

PATIENT
  Age: 78 Year
  Sex: Female
  Weight: 82 kg

DRUGS (3)
  1. PARNATE [Suspect]
     Indication: DEPRESSION
     Dosage: 40MG PER DAY
     Route: 048
     Dates: start: 20050101, end: 20080201
  2. CLORANA [Concomitant]
     Dates: start: 20030101
  3. CLONAZEPAM [Concomitant]
     Dates: start: 19980101

REACTIONS (4)
  - AGGRESSION [None]
  - APATHY [None]
  - MENTAL DISORDER [None]
  - PSYCHOMOTOR HYPERACTIVITY [None]
